FAERS Safety Report 9868760 (Version 2)
Quarter: 2014Q1

REPORT INFORMATION
  Report Type: Spontaneous
  Country: US (occurrence: US)
  Receive Date: 20140204
  Receipt Date: 20140204
  Transmission Date: 20141002
  Serious: Yes (Hospitalization)
  Sender: FDA-Public Use
  Company Number: US-TMC-CABO-13003815

PATIENT
  Age: 59 Year
  Sex: Female

DRUGS (11)
  1. COMETRIQ [Suspect]
     Indication: THYROID CANCER
     Dosage: 140 MG, QD
     Route: 048
     Dates: start: 20131223, end: 20140122
  2. EXCEDRIN [Concomitant]
  3. LISINOPRIL [Concomitant]
  4. PAROXETINE [Concomitant]
  5. SYNTHROID [Concomitant]
  6. SIMVASTATIN [Concomitant]
  7. NAPROXEN [Concomitant]
  8. MECLIZINE [Concomitant]
  9. PROMETHAZINE [Concomitant]
  10. GABAPENTIN [Concomitant]
  11. CYCLOBENZAPRINE [Concomitant]

REACTIONS (6)
  - Malnutrition [Unknown]
  - Dehydration [Unknown]
  - Asthenia [Unknown]
  - Diarrhoea [Unknown]
  - Nausea [Unknown]
  - Headache [Unknown]
